FAERS Safety Report 25869900 (Version 1)
Quarter: 2025Q4

REPORT INFORMATION
  Report Type: Spontaneous
  Country: EU (occurrence: EU)
  Receive Date: 20251001
  Receipt Date: 20251001
  Transmission Date: 20260117
  Serious: Yes (Life-Threatening, Other)
  Sender: MERZ
  Company Number: None

PATIENT

DRUGS (2)
  1. BOTULINUM TOXIN TYPE A [Suspect]
     Active Substance: BOTULINUM TOXIN TYPE A
     Indication: Skin cosmetic procedure
     Dosage: INJECTION AU NIVEAU DU FRONT, SANS AUTRE PR?CISION, DOSE DE 30 U (0.6 ML)
     Dates: start: 20250902, end: 20250902
  2. HYALURONATE SODIUM [Concomitant]
     Active Substance: HYALURONATE SODIUM

REACTIONS (1)
  - Botulism [Not Recovered/Not Resolved]

NARRATIVE: CASE EVENT DATE: 20250905
